FAERS Safety Report 20008337 (Version 1)
Quarter: 2021Q4

REPORT INFORMATION
  Report Type: Spontaneous
  Country: US (occurrence: US)
  Receive Date: 20211029
  Receipt Date: 20211029
  Transmission Date: 20220303
  Serious: No
  Sender: FDA-Public Use
  Company Number: US-ULTRAGENYX PHARMACEUTICAL INC.-US-UGNX-21-00243

PATIENT
  Age: 4 Year
  Sex: Female
  Weight: 20.4 kg

DRUGS (1)
  1. DOJOLVI [Suspect]
     Active Substance: TRIHEPTANOIN
     Indication: Fatty acid oxidation disorder
     Dosage: 46 ML, VIA G-TUBE
     Dates: start: 201611

REACTIONS (2)
  - Herpes simplex [Recovered/Resolved]
  - Streptococcal infection [Recovered/Resolved]

NARRATIVE: CASE EVENT DATE: 20210701
